FAERS Safety Report 8334431-4 (Version None)
Quarter: 2012Q2

REPORT INFORMATION
  Report Type: 
  Country: None (occurrence: None)
  Receive Date: 20120503
  Receipt Date: 20111026
  Transmission Date: 20120825
  Serious: No
  Sender: FDA-Public Use
  Company Number: US-BAUSCH-2011BL007336

PATIENT
  Age: 64 Year
  Sex: Male

DRUGS (2)
  1. TRAVATAN [Concomitant]
  2. LOTEMAX [Suspect]
     Indication: POSTOPERATIVE CARE
     Route: 047
     Dates: start: 20110829

REACTIONS (1)
  - PRURITUS GENERALISED [None]
